FAERS Safety Report 11030171 (Version 1)
Quarter: 2015Q2

REPORT INFORMATION
  Report Type: Spontaneous
  Country: US (occurrence: US)
  Receive Date: 20150415
  Receipt Date: 20150415
  Transmission Date: 20150821
  Serious: No
  Sender: FDA-Public Use
  Company Number: US-MYLANLABS-2015M1006979

PATIENT
  Age: 18 Year
  Sex: Female
  Weight: 50.34 kg

DRUGS (1)
  1. CHATEAL [Suspect]
     Active Substance: ETHINYL ESTRADIOL\LEVONORGESTREL
     Indication: CONTRACEPTION
     Dosage: 0.15/0.03 MG, QD
     Route: 048
     Dates: start: 2014

REACTIONS (3)
  - Vaginal haemorrhage [Not Recovered/Not Resolved]
  - Drug dose omission [Recovered/Resolved]
  - Vomiting [Recovered/Resolved]

NARRATIVE: CASE EVENT DATE: 20150224
